FAERS Safety Report 8179493-2 (Version None)
Quarter: 2012Q1

REPORT INFORMATION
  Report Type: 
  Country: None (occurrence: None)
  Receive Date: 20120302
  Receipt Date: 20120227
  Transmission Date: 20120608
  Serious: Yes (Death)
  Sender: FDA-Public Use
  Company Number: CHPA2012US003767

PATIENT
  Age: 19 Year
  Sex: Female

DRUGS (2)
  1. ACETAMINOPHEN [Suspect]
     Dosage: UNK,UNK
     Route: 048
  2. DEXTROMETHORPHAN HYDROBROMIDE, ACETAMINOPHEN (PARACETAMOL) [Suspect]
     Dosage: UNK,UNK
     Route: 048

REACTIONS (1)
  - MEDICATION ERROR [None]
